FAERS Safety Report 6264699-X (Version None)
Quarter: 2009Q3

REPORT INFORMATION
  Report Type: 
  Country: None (occurrence: None)
  Receive Date: 20090710
  Receipt Date: 20090629
  Transmission Date: 20100115
  Serious: Yes (Other)
  Sender: FDA-Public Use
  Company Number: US-PFIZER INC-2009234859

PATIENT
  Sex: Female
  Weight: 104 kg

DRUGS (12)
  1. CHANTIX [Suspect]
     Indication: SMOKING CESSATION THERAPY
     Dates: start: 20090601
  2. INSULIN [Concomitant]
     Dosage: UNK
  3. LASIX [Concomitant]
     Dosage: UNK
  4. REGLAN [Concomitant]
     Dosage: UNK
  5. LIPITOR [Concomitant]
     Dosage: UNK
  6. BENAZEPRIL [Concomitant]
     Dosage: UNK
  7. CYTOMEL [Concomitant]
     Dosage: UNK
  8. LAMICTAL [Concomitant]
     Dosage: UNK
  9. LEXAPRO [Concomitant]
     Dosage: UNK
  10. ROZEREM [Concomitant]
     Dosage: UNK
  11. NEXIUM [Concomitant]
     Dosage: UNK
  12. RISPERDAL [Concomitant]
     Dosage: UNK

REACTIONS (1)
  - ANXIETY DISORDER [None]
